FAERS Safety Report 11807370 (Version 1)
Quarter: 2015Q4

REPORT INFORMATION
  Report Type: Spontaneous
  Country: DE (occurrence: DE)
  Receive Date: 20151207
  Receipt Date: 20151207
  Transmission Date: 20160305
  Serious: Yes (Other)
  Sender: FDA-Public Use
  Company Number: DE-009507513-1512DEU002694

PATIENT
  Age: 62 Year
  Sex: Male

DRUGS (1)
  1. KEYTRUDA [Suspect]
     Active Substance: PEMBROLIZUMAB
     Indication: METASTATIC MALIGNANT MELANOMA
     Dosage: Q3W
     Route: 042
     Dates: start: 2014, end: 2015

REACTIONS (1)
  - Melanoma recurrent [Unknown]

NARRATIVE: CASE EVENT DATE: 2015
